FAERS Safety Report 9973037 (Version 2)
Quarter: 2014Q1

REPORT INFORMATION
  Report Type: Report from Study
  Country: PR (occurrence: PR)
  Receive Date: 20140306
  Receipt Date: 20140306
  Transmission Date: 20141002
  Serious: Yes (Other)
  Sender: FDA-Public Use
  Company Number: PR-ABBVIE-13P-131-1154966-00

PATIENT
  Sex: Female
  Weight: 73.09 kg

DRUGS (12)
  1. HUMIRA [Suspect]
     Indication: RHEUMATOID ARTHRITIS
     Route: 058
  2. PREDNISONE [Concomitant]
     Indication: RHEUMATOID ARTHRITIS
     Route: 048
  3. TRAMADOL [Concomitant]
     Indication: PAIN
     Route: 048
  4. METFORMIN [Concomitant]
     Indication: DIABETES MELLITUS
     Route: 048
  5. CLONAZEPAM [Concomitant]
     Indication: MAJOR DEPRESSION
     Route: 048
  6. NORVASC [Concomitant]
     Indication: HYPERTENSION
     Route: 048
  7. PLAQUENIL [Concomitant]
     Indication: RHEUMATOID ARTHRITIS
     Route: 048
  8. CLONAZEPAM [Concomitant]
     Indication: MAJOR DEPRESSION
     Dosage: AT BEDTIME
     Route: 048
  9. AMBIEN [Concomitant]
     Indication: INSOMNIA
     Dosage: 1 AT BEDTIME
     Route: 048
  10. SIMVASTATIN [Concomitant]
     Indication: BLOOD CHOLESTEROL
     Route: 048
  11. WELLBUTRIN [Concomitant]
     Indication: MAJOR DEPRESSION
     Route: 048
  12. HUMULIN [Concomitant]
     Indication: DIABETES MELLITUS
     Dosage: 1 AT BEDTIME
     Route: 058

REACTIONS (3)
  - Cataract [Recovered/Resolved]
  - Swelling face [Recovering/Resolving]
  - Dysphonia [Not Recovered/Not Resolved]
